FAERS Safety Report 4937180-5 (Version None)
Quarter: 2006Q1

REPORT INFORMATION
  Report Type: 
  Country: None (occurrence: None)
  Receive Date: 20060302
  Receipt Date: 20060211
  Transmission Date: 20060701
  Serious: Yes (Hospitalization, Other)
  Sender: FDA-Public Use
  Company Number: JP200602002864

PATIENT
  Age: 68 Year
  Sex: Female

DRUGS (11)
  1. HUMALOG [Suspect]
     Indication: DIABETES MELLITUS NON-INSULIN-DEPENDENT
     Dosage: 8 UG, 3/D, SUBCUTANEOUS
     Route: 058
  2. INSULIN [Suspect]
     Indication: DIABETES MELLITUS NON-INSULIN-DEPENDENT
     Dosage: 24 U, DAILY (1/D), SUBCUTANEOUS
     Route: 058
     Dates: end: 20060211
  3. CHOLEBINE (COLESTILAN) [Concomitant]
  4. BERIZYM (ENZYMES NOS) [Concomitant]
  5. SELBEX (TEPRENONE) [Concomitant]
  6. ACECOL (TEMOCAPRIL HYDROCHLORIDE) [Concomitant]
  7. AMLODIPINE BESYLATE [Concomitant]
  8. BUFFERIN/JPN(ACETYLSALICYLIC ACID, ALUMINUM GLYCINATE) TABLET [Concomitant]
  9. DOXAZOSIN MESYLATE [Concomitant]
  10. LASIX [Concomitant]
  11. LIPITOR [Concomitant]

REACTIONS (6)
  - CONTUSION [None]
  - DEPRESSED LEVEL OF CONSCIOUSNESS [None]
  - FALL [None]
  - HYPOGLYCAEMIA [None]
  - MOUTH HAEMORRHAGE [None]
  - SUBDURAL HAEMATOMA [None]
